FAERS Safety Report 12587455 (Version 11)
Quarter: 2018Q1

REPORT INFORMATION
  Report Type: Report from Study
  Country: CO (occurrence: CO)
  Receive Date: 20160725
  Receipt Date: 20180309
  Transmission Date: 20180508
  Serious: Yes (Hospitalization, Other)
  Sender: FDA-Public Use
  Company Number: PHHY2015CO159067

PATIENT
  Age: 72 Year
  Sex: Male
  Weight: 94 kg

DRUGS (7)
  1. LORATADINE. [Concomitant]
     Active Substance: LORATADINE
     Indication: PRODUCT USED FOR UNKNOWN INDICATION
     Route: 065
  2. VITAMIIN C [Concomitant]
     Active Substance: ASCORBIC ACID
     Indication: PRODUCT USED FOR UNKNOWN INDICATION
     Dosage: UNK
     Route: 065
  3. OMEPRAZOLE. [Concomitant]
     Active Substance: OMEPRAZOLE
     Indication: GASTROINTESTINAL DISORDER
     Dosage: QD
     Route: 065
  4. ALUMINUM HYDROXIDE. [Suspect]
     Active Substance: ALUMINUM HYDROXIDE
     Indication: PRODUCT USED FOR UNKNOWN INDICATION
     Route: 065
  5. TASIGNA [Suspect]
     Active Substance: NILOTINIB
     Indication: CHRONIC MYELOID LEUKAEMIA
     Dosage: 2 DF, Q12H (2 CAPSULES EVERY 12 HOURS)
     Route: 048
     Dates: start: 20130530, end: 201601
  6. TASIGNA [Suspect]
     Active Substance: NILOTINIB
     Dosage: 150 MG, QID
     Route: 048
     Dates: start: 20160617
  7. TASIGNA [Suspect]
     Active Substance: NILOTINIB
     Dosage: 150 MG, QID
     Route: 048
     Dates: end: 201709

REACTIONS (40)
  - White blood cell count increased [Unknown]
  - Peripheral swelling [Unknown]
  - Inappropriate schedule of drug administration [Unknown]
  - Cough [Unknown]
  - Pyrexia [Unknown]
  - Eye pain [Unknown]
  - Abdominal pain [Unknown]
  - Drug ineffective [Unknown]
  - Pain [Unknown]
  - Condition aggravated [Unknown]
  - Gastritis [Not Recovered/Not Resolved]
  - Rash [Unknown]
  - Pain in extremity [Unknown]
  - Pneumonia [Unknown]
  - Influenza [Unknown]
  - Loss of consciousness [Unknown]
  - Fall [Unknown]
  - Blood glucose abnormal [Unknown]
  - Speech disorder [Unknown]
  - Chills [Unknown]
  - Malignant neoplasm progression [Unknown]
  - Cholelithiasis [Unknown]
  - Headache [Not Recovered/Not Resolved]
  - Vomiting [Unknown]
  - Asthenia [Unknown]
  - Toothache [Not Recovered/Not Resolved]
  - Mouth haemorrhage [Unknown]
  - Fatigue [Unknown]
  - Bone pain [Not Recovered/Not Resolved]
  - Alcohol poisoning [Unknown]
  - Haematemesis [Unknown]
  - Yellow skin [Unknown]
  - Dizziness [Unknown]
  - Splenomegaly [Unknown]
  - Blood count abnormal [Unknown]
  - Chronic myeloid leukaemia [Unknown]
  - Pleural effusion [Unknown]
  - Drug intolerance [Unknown]
  - Malaise [Unknown]
  - Weight decreased [Unknown]

NARRATIVE: CASE EVENT DATE: 20151015
